FAERS Safety Report 5054225-5 (Version None)
Quarter: 2006Q3

REPORT INFORMATION
  Report Type: 
  Country: None (occurrence: None)
  Receive Date: 20060718
  Receipt Date: 20060712
  Transmission Date: 20061208
  Serious: Yes (Disabling)
  Sender: FDA-Public Use
  Company Number: 2006AC01293

PATIENT
  Age: 58 Year
  Sex: Female

DRUGS (3)
  1. CRESTOR [Suspect]
     Route: 048
     Dates: start: 20050901, end: 20051005
  2. TOLBUTAMIDE [Concomitant]
  3. LOSEC [Concomitant]

REACTIONS (2)
  - GAIT DISTURBANCE [None]
  - WALKING DISABILITY [None]
